FAERS Safety Report 9152279 (Version 1)
Quarter: 2013Q1

REPORT INFORMATION
  Report Type: Spontaneous
  Country: US (occurrence: US)
  Receive Date: 20130308
  Receipt Date: 20130308
  Transmission Date: 20140127
  Serious: No
  Sender: FDA-Public Use
  Company Number: US-PFIZER INC-2013079003

PATIENT
  Sex: Female

DRUGS (3)
  1. TOVIAZ [Suspect]
     Dosage: UNK
     Route: 048
     Dates: start: 20130205
  2. BISACODYL [Suspect]
     Indication: CONSTIPATION
     Dosage: UNK
     Route: 048
     Dates: start: 2013
  3. DULCOLAX [Suspect]
     Indication: CONSTIPATION
     Dosage: UNK
     Route: 048
     Dates: start: 2013

REACTIONS (2)
  - Constipation [Not Recovered/Not Resolved]
  - Drug ineffective [Unknown]
